FAERS Safety Report 14499224 (Version 1)
Quarter: 2018Q1

REPORT INFORMATION
  Report Type: Spontaneous
  Country: US (occurrence: US)
  Receive Date: 20180207
  Receipt Date: 20180207
  Transmission Date: 20180509
  Serious: No
  Sender: FDA-Public Use
  Company Number: US-JAZZ-2017-US-004352

PATIENT
  Age: 51 Year
  Sex: Female
  Weight: 100.23 kg

DRUGS (5)
  1. DILAUDID [Suspect]
     Active Substance: HYDROMORPHONE HYDROCHLORIDE
     Indication: SPINAL PAIN
     Dosage: UNK, MG, QH
     Route: 037
  2. MORPHINE [Suspect]
     Active Substance: MORPHINE
     Indication: PRODUCT USED FOR UNKNOWN INDICATION
     Dosage: UNK MG, QH
     Route: 037
  3. PRIALT [Suspect]
     Active Substance: ZICONOTIDE ACETATE
     Indication: SPINAL PAIN
     Dosage: 0.098 ?G, QH
     Route: 037
  4. BUPIVACAINE. [Suspect]
     Active Substance: BUPIVACAINE
     Indication: SPINAL PAIN
     Dosage: 0.137?G, QH
     Route: 037
  5. HYDROMORPHONE [Suspect]
     Active Substance: HYDROMORPHONE
     Indication: SPINAL PAIN
     Dosage: 0.26 MG, QH
     Route: 037

REACTIONS (18)
  - Withdrawal syndrome [Unknown]
  - Vomiting [Unknown]
  - Dyskinesia [Unknown]
  - Hypoaesthesia [Unknown]
  - Confusional state [Unknown]
  - Muscle spasms [Unknown]
  - Fall [Recovered/Resolved]
  - Headache [Not Recovered/Not Resolved]
  - Gait disturbance [Unknown]
  - Muscle twitching [Not Recovered/Not Resolved]
  - Presyncope [Unknown]
  - Hyperhidrosis [Unknown]
  - Device issue [Unknown]
  - Unevaluable event [Unknown]
  - Piloerection [Unknown]
  - Nausea [Unknown]
  - Paraesthesia [Unknown]
  - Vision blurred [Unknown]

NARRATIVE: CASE EVENT DATE: 2015
